FAERS Safety Report 6518352-5 (Version None)
Quarter: 2009Q4

REPORT INFORMATION
  Report Type: 
  Country: None (occurrence: None)
  Receive Date: 20091224
  Receipt Date: 20091123
  Transmission Date: 20100525
  Serious: No
  Sender: FDA-Public Use
  Company Number: US-BAYER-200941121NA

PATIENT
  Age: 30 Year
  Sex: Female
  Weight: 50 kg

DRUGS (1)
  1. YAZ [Suspect]
     Indication: CONTRACEPTION
     Route: 048
     Dates: start: 20091001

REACTIONS (5)
  - ANXIETY [None]
  - DIZZINESS [None]
  - MOOD SWINGS [None]
  - PALPITATIONS [None]
  - WEIGHT INCREASED [None]
